FAERS Safety Report 11767007 (Version 1)
Quarter: 2015Q4

REPORT INFORMATION
  Report Type: Spontaneous
  Country: US (occurrence: US)
  Receive Date: 20151123
  Receipt Date: 20151123
  Transmission Date: 20160304
  Serious: Yes (Other)
  Sender: FDA-Public Use
  Company Number: PHHY2015US148568

PATIENT
  Age: 18 Year
  Sex: Male

DRUGS (4)
  1. LOXAPINE. [Suspect]
     Active Substance: LOXAPINE
     Indication: AUTISM
     Dosage: 10 MG, QD
     Route: 065
  2. RISPERIDONE. [Suspect]
     Active Substance: RISPERIDONE
     Indication: AUTISM
     Route: 065
  3. VALPROIC ACID. [Suspect]
     Active Substance: VALPROIC ACID
     Indication: AUTISM
     Route: 065
  4. ATOMOXETINE [Suspect]
     Active Substance: ATOMOXETINE
     Indication: AUTISM
     Route: 065

REACTIONS (1)
  - Akathisia [Unknown]
